FAERS Safety Report 18527046 (Version 1)
Quarter: 2020Q4

REPORT INFORMATION
  Report Type: Spontaneous
  Country: US (occurrence: US)
  Receive Date: 20201120
  Receipt Date: 20201120
  Transmission Date: 20210114
  Serious: Yes (Hospitalization, Other)
  Sender: FDA-Public Use
  Company Number: US-TARO-2020TAR01704

PATIENT
  Age: 73 Year
  Sex: Male

DRUGS (9)
  1. FINASTERIDE. [Concomitant]
     Active Substance: FINASTERIDE
     Indication: PRODUCT USED FOR UNKNOWN INDICATION
     Dosage: 5 MILLIGRAM, DAILY ONCE
     Route: 048
  2. APIXABAN [Concomitant]
     Active Substance: APIXABAN
     Indication: PRODUCT USED FOR UNKNOWN INDICATION
     Dosage: 5 MILLIGRAM, DAILY, TWICE
     Route: 048
  3. TAMSULOSIN [Concomitant]
     Active Substance: TAMSULOSIN
     Indication: PRODUCT USED FOR UNKNOWN INDICATION
     Dosage: 0.4 MILLIGRAM, DAILY, ONCE
     Route: 048
  4. AMIODARONE [Suspect]
     Active Substance: AMIODARONE
     Dosage: 0.5 MILLIGRAM, 1DOSE/1HOUR FOR 8 HOURS
     Route: 042
  5. AMIODARONE [Suspect]
     Active Substance: AMIODARONE
     Indication: TACHYCARDIA
     Dosage: 1 MILLIGRAM, 1DOSE/1HOUR FOR 6 HOUR
     Route: 042
  6. CEFTRIAXONE. [Concomitant]
     Active Substance: CEFTRIAXONE
     Indication: PULMONARY SEPSIS
     Dosage: UNK
     Route: 065
  7. AMIODARONE [Suspect]
     Active Substance: AMIODARONE
     Indication: ATRIAL FIBRILLATION
     Dosage: 150 MILLIGRAM, AT 72 H AFTER ADMISSION
     Route: 042
  8. AMIODARONE [Suspect]
     Active Substance: AMIODARONE
     Indication: TACHYCARDIA
     Dosage: 200 MILLIGRAM, DAILY
     Route: 048
  9. AMIODARONE [Suspect]
     Active Substance: AMIODARONE
     Indication: ATRIAL FIBRILLATION
     Dosage: 400 MILLIGRAM, DAILY, LOADING DOSE
     Route: 048

REACTIONS (4)
  - Systemic inflammatory response syndrome [Recovered/Resolved]
  - Off label use [Unknown]
  - Multiple organ dysfunction syndrome [Recovered/Resolved]
  - Toxicity to various agents [Recovered/Resolved]
